FAERS Safety Report 24284369 (Version 2)
Quarter: 2024Q4

REPORT INFORMATION
  Report Type: Report from Study
  Country: US (occurrence: US)
  Receive Date: 20240905
  Receipt Date: 20241105
  Transmission Date: 20250114
  Serious: Yes (Hospitalization, Other)
  Sender: NOVARTIS
  Company Number: US-002147023-NVSC2024US175627

PATIENT
  Age: 51 Year
  Sex: Male

DRUGS (1)
  1. KESIMPTA [Suspect]
     Active Substance: OFATUMUMAB
     Indication: Multiple sclerosis
     Dosage: 20 MG, QW
     Route: 058
     Dates: start: 20240812

REACTIONS (5)
  - Pulmonary embolism [Recovering/Resolving]
  - Pneumonia [Unknown]
  - Injury [Unknown]
  - Erythema [Unknown]
  - Dyspnoea [Unknown]

NARRATIVE: CASE EVENT DATE: 20240819
